FAERS Safety Report 8874920 (Version 1)
Quarter: 2012Q4

REPORT INFORMATION
  Report Type: 
  Country: US (occurrence: US)
  Receive Date: 20121026
  Receipt Date: 20121026
  Transmission Date: 20130627
  Serious: No
  Sender: FDA-Public Use
  Company Number: US-AMGEN-USASP2012042293

PATIENT
  Age: 65 Year
  Sex: Female
  Weight: 35.37 kg

DRUGS (7)
  1. ENBREL [Suspect]
     Indication: PSORIATIC ARTHROPATHY
     Dosage: 50 mg, qwk
     Route: 058
  2. PREMARIN [Concomitant]
     Dosage: 0.9 mg, UNK
     Route: 048
  3. AMLODIPINE [Concomitant]
     Dosage: 2.5 mg, UNK
     Route: 048
  4. ADVAIR [Concomitant]
     Dosage: 115/21
  5. NEXIUM                             /01479302/ [Concomitant]
     Dosage: 20 mg, UNK
     Route: 048
  6. MOBIC [Concomitant]
     Dosage: 7.5 mg, UNK
  7. LOSARTAN [Concomitant]
     Dosage: 25 mg, UNK
     Route: 048

REACTIONS (2)
  - Cough [Recovered/Resolved]
  - Upper respiratory tract infection [Recovered/Resolved]
